FAERS Safety Report 14632728 (Version 1)
Quarter: 2018Q1

REPORT INFORMATION
  Report Type: Spontaneous
  Country: US (occurrence: US)
  Receive Date: 20180313
  Receipt Date: 20180313
  Transmission Date: 20180509
  Serious: No
  Sender: FDA-Public Use
  Company Number: US-CELLTRION INC.-2017US013488

PATIENT

DRUGS (1)
  1. INFLECTRA [Suspect]
     Active Substance: INFLIXIMAB-DYYB
     Indication: PSORIASIS
     Dosage: 5 MG/KG, 0, 2, 6 WEEKS THEN EVERY 6 WEEKS
     Route: 065

REACTIONS (1)
  - Drug prescribing error [Unknown]
